FAERS Safety Report 9040411 (Version 1)
Quarter: 2013Q1

REPORT INFORMATION
  Report Type: Report from Study
  Country: US (occurrence: US)
  Receive Date: 20130129
  Receipt Date: 20130129
  Transmission Date: 20140127
  Serious: No
  Sender: FDA-Public Use
  Company Number: US-ABBOTT-12P-163-0894150-00

PATIENT
  Age: 69 Year
  Sex: Female

DRUGS (17)
  1. HUMIRA 40 MG/0.8 ML PEN [Suspect]
     Indication: RHEUMATOID ARTHRITIS
     Dates: start: 201108
  2. MTX [Concomitant]
     Indication: PRODUCT USED FOR UNKNOWN INDICATION
  3. ETODOLAC [Concomitant]
     Indication: PRODUCT USED FOR UNKNOWN INDICATION
  4. PAROXETINE HCL [Concomitant]
     Indication: PRODUCT USED FOR UNKNOWN INDICATION
  5. OMEPRAZOLE [Concomitant]
     Indication: PRODUCT USED FOR UNKNOWN INDICATION
  6. PREDNISONE [Concomitant]
     Indication: PRODUCT USED FOR UNKNOWN INDICATION
  7. FOLIC ACID [Concomitant]
     Indication: PRODUCT USED FOR UNKNOWN INDICATION
  8. CRESTOR [Concomitant]
     Indication: PRODUCT USED FOR UNKNOWN INDICATION
  9. ALPRAZOLAM [Concomitant]
     Indication: PRODUCT USED FOR UNKNOWN INDICATION
  10. VENTOLIN [Concomitant]
     Indication: HYPERSENSITIVITY
  11. VENTOLIN [Concomitant]
     Indication: COUGH
  12. NASONEX [Concomitant]
     Indication: HYPERSENSITIVITY
  13. NASONEX [Concomitant]
     Indication: COUGH
  14. ALLEGRA [Concomitant]
     Indication: HYPERSENSITIVITY
  15. ALLEGRA [Concomitant]
     Indication: COUGH
  16. SINGULAR [Concomitant]
     Indication: HYPERSENSITIVITY
  17. SINGULAR [Concomitant]
     Indication: COUGH

REACTIONS (1)
  - Nasopharyngitis [Recovering/Resolving]
